FAERS Safety Report 23371341 (Version 2)
Quarter: 2024Q1

REPORT INFORMATION
  Report Type: Report from Study
  Country: CN (occurrence: CN)
  Receive Date: 20240105
  Receipt Date: 20240117
  Transmission Date: 20240410
  Serious: No
  Sender: FDA-Public Use
  Company Number: CN-PFIZER INC-PV202300210425

PATIENT
  Age: 68 Year
  Sex: Male

DRUGS (44)
  1. NIRMATRELVIR\RITONAVIR [Suspect]
     Active Substance: NIRMATRELVIR\RITONAVIR
     Dosage: [NIRMATRELVIR 300MG]/[RITONAVIR 100MG], 2X/DAY
     Dates: start: 20220525, end: 20220530
  2. NIRMATRELVIR\RITONAVIR [Suspect]
     Active Substance: NIRMATRELVIR\RITONAVIR
     Dosage: [NIRMATRELVIR 300MG]/[RITONAVIR 100MG], 2X/DAY
     Dates: start: 20220603, end: 20220608
  3. INTERFERON ALFA NOS [Concomitant]
     Active Substance: INTERFERON ALFA-2A OR INTERFERON ALFA-2B
     Indication: Antiviral prophylaxis
     Dosage: 2B SPRAY, HUMAN INTERFERON ALFA
     Route: 045
     Dates: start: 20220522, end: 20220526
  4. HERBALS [Concomitant]
     Active Substance: HERBALS
     Indication: Antiviral prophylaxis
     Dosage: UNK
     Route: 042
     Dates: start: 20220522, end: 20220526
  5. COATED ALDEHYDE OXYSTARCH [Concomitant]
     Indication: Renal disorder prophylaxis
     Dosage: UNK
     Route: 048
     Dates: start: 20220523, end: 20220526
  6. PIPERAZINE BISFERULATE [Concomitant]
     Active Substance: PIPERAZINE BISFERULATE
     Indication: Renal disorder prophylaxis
     Dosage: UNK
     Route: 048
     Dates: start: 20220523, end: 20220526
  7. ENOXAPARIN SODIUM [Concomitant]
     Active Substance: ENOXAPARIN SODIUM
     Indication: Anticoagulant therapy
     Dosage: UNK
     Route: 058
     Dates: start: 20220523, end: 20220526
  8. ESOMEPRAZOLE SODIUM [Concomitant]
     Active Substance: ESOMEPRAZOLE SODIUM
     Indication: Gastrointestinal disorder prophylaxis
     Dosage: UNK
     Route: 042
     Dates: start: 20220524, end: 20220526
  9. INSULIN HUMAN [Concomitant]
     Active Substance: INSULIN HUMAN
     Indication: Hypoglycaemia
     Dosage: UNK
     Route: 042
     Dates: start: 20220524, end: 20220526
  10. CEFTRIAXONE [Concomitant]
     Active Substance: CEFTRIAXONE\CEFTRIAXONE SODIUM
     Indication: Anti-infective therapy
     Dosage: UNK
     Route: 042
     Dates: start: 20220525, end: 20220526
  11. HUMAN IMMUNOGLOBULIN G [Concomitant]
     Active Substance: HUMAN IMMUNOGLOBULIN G
     Indication: Immunodeficiency
     Dosage: UNK
     Route: 042
     Dates: start: 20220525, end: 20220526
  12. MOSAPRIDE [Concomitant]
     Active Substance: MOSAPRIDE
     Indication: Lipids
     Dosage: UNK
     Route: 058
     Dates: start: 20220525, end: 20220526
  13. ATORVASTATIN CALCIUM [Concomitant]
     Active Substance: ATORVASTATIN CALCIUM
     Indication: Lipids
     Dosage: UNK
     Route: 048
     Dates: start: 20220525, end: 20220526
  14. MOXIFLOXACIN HYDROCHLORIDE [Concomitant]
     Active Substance: MOXIFLOXACIN HYDROCHLORIDE\MOXIFLOXACIN HYDROCHLORIDE MONOHYDRATE
     Indication: Anti-infective therapy
     Dosage: UNK
     Route: 042
     Dates: start: 20220526, end: 20220526
  15. AMBROXOL HYDROCHLORIDE [Concomitant]
     Active Substance: AMBROXOL HYDROCHLORIDE
     Indication: Productive cough
     Dosage: UNK
     Route: 058
     Dates: start: 20220526, end: 20220526
  16. PREDNISOLONE SODIUM SUCCINATE [Concomitant]
     Active Substance: PREDNISOLONE SODIUM SUCCINATE
     Indication: Drug therapy
     Dosage: UNK
     Dates: start: 20220526, end: 20220526
  17. NADROPARIN CALCIUM [Concomitant]
     Active Substance: NADROPARIN CALCIUM
     Indication: Anticoagulant therapy
     Dosage: UNK
     Route: 058
     Dates: start: 20220526, end: 20220609
  18. METHYLCOBALAMIN [Concomitant]
     Active Substance: METHYLCOBALAMIN
     Indication: Drug therapy
     Dosage: UNK
     Route: 048
     Dates: start: 20220526, end: 20220609
  19. FOLIC ACID [Concomitant]
     Active Substance: FOLIC ACID
     Indication: Nutritional supplementation
     Dosage: UNK
     Route: 048
     Dates: start: 20220526, end: 20220609
  20. THYMALFASIN [Concomitant]
     Active Substance: THYMALFASIN
     Indication: Immunodeficiency
     Dosage: UNK
     Route: 058
     Dates: start: 20220527, end: 20220529
  21. METHYLPREDNISOLONE SODIUM SUCCINATE [Concomitant]
     Active Substance: METHYLPREDNISOLONE SODIUM SUCCINATE
     Indication: Prophylaxis
     Dosage: UNK
     Route: 042
     Dates: start: 20220527, end: 20220609
  22. GLICLAZIDE [Concomitant]
     Active Substance: GLICLAZIDE
     Indication: Hypoglycaemia
     Dosage: UNK
     Route: 048
     Dates: start: 20220527, end: 20220527
  23. INSULIN GLARGINE [Concomitant]
     Active Substance: INSULIN GLARGINE
     Indication: Hypoglycaemia
     Dosage: UNK
     Route: 058
     Dates: start: 20220527, end: 20220528
  24. LEUCOGEN [Concomitant]
     Active Substance: LEUCOGEN
     Indication: White blood cell count increased
     Dosage: UNK
     Route: 048
     Dates: start: 20220527
  25. OLANZAPINE [Concomitant]
     Active Substance: OLANZAPINE
     Indication: Drug therapy
     Dosage: UNK
     Route: 048
     Dates: start: 20220526, end: 20220606
  26. SERTRALINE [Concomitant]
     Active Substance: SERTRALINE HYDROCHLORIDE
     Indication: Antidepressant therapy
     Dosage: UNK
     Route: 048
     Dates: start: 20220526, end: 20220607
  27. ADALAT [Concomitant]
     Active Substance: NIFEDIPINE
     Indication: Blood pressure measurement
     Dosage: UNK
     Route: 048
     Dates: start: 20220531, end: 20220601
  28. ADALAT [Concomitant]
     Active Substance: NIFEDIPINE
     Dosage: UNK
     Route: 048
     Dates: start: 20220523, end: 20220523
  29. CEFOTAXIME [Concomitant]
     Active Substance: CEFOTAXIME SODIUM
     Indication: Anti-infective therapy
     Dosage: UNK
     Route: 042
     Dates: start: 20220603, end: 20220605
  30. CEFOTAXIME [Concomitant]
     Active Substance: CEFOTAXIME SODIUM
     Dosage: UNK
     Route: 042
     Dates: start: 20220605, end: 20220609
  31. AVIBACTAM [Concomitant]
     Active Substance: AVIBACTAM
     Indication: Anti-infective therapy
     Dosage: UNK
     Route: 042
     Dates: start: 20220603, end: 20220605
  32. AVIBACTAM [Concomitant]
     Active Substance: AVIBACTAM
     Dosage: UNK
     Route: 042
     Dates: start: 20220605, end: 20220609
  33. VANCOMYCIN HYDROCHLORIDE [Concomitant]
     Active Substance: VANCOMYCIN HYDROCHLORIDE
     Indication: Anti-infective therapy
     Dosage: UNK
     Route: 042
     Dates: start: 20220605, end: 20220609
  34. ERYTHROPOIETIN [Concomitant]
     Active Substance: ERYTHROPOIETIN
     Indication: Red blood cell count increased
     Dosage: UNK
     Route: 058
     Dates: start: 20220606, end: 20220608
  35. ROXADUSTAT [Concomitant]
     Active Substance: ROXADUSTAT
     Indication: Anaemia
     Dosage: UNK
     Route: 048
     Dates: start: 20220607, end: 20220609
  36. CALCIUM CARBONATE [Concomitant]
     Active Substance: CALCIUM CARBONATE
     Indication: Mineral supplementation
     Dosage: PARTICLES
     Route: 048
     Dates: start: 20220607, end: 20220609
  37. SODIUM BICARBONATE [Concomitant]
     Active Substance: SODIUM BICARBONATE
     Indication: Drug therapy
     Dosage: UNK
     Route: 048
     Dates: start: 20220607, end: 20220609
  38. NORVASC [Concomitant]
     Active Substance: AMLODIPINE BESYLATE
     Indication: Blood pressure management
     Dosage: UNK
     Route: 048
     Dates: start: 20220608, end: 20220609
  39. GENTAMICIN SULFATE [Concomitant]
     Active Substance: GENTAMICIN SULFATE
     Indication: Bladder irrigation
     Dosage: UNK
     Dates: start: 20220608, end: 20220609
  40. IBUPROFEN [Concomitant]
     Active Substance: IBUPROFEN
     Indication: Antipyresis
     Dosage: UNK
     Route: 048
     Dates: start: 20220523, end: 20220523
  41. METOCLOPRAMIDE [Concomitant]
     Active Substance: METOCLOPRAMIDE
     Indication: Antiemetic supportive care
     Dosage: UNK
     Route: 030
     Dates: start: 20220525, end: 20220525
  42. MOSAPRIDE CITRATE [Concomitant]
     Active Substance: MOSAPRIDE CITRATE
     Indication: Drug therapy
     Dosage: UNK
     Route: 048
     Dates: start: 20220525, end: 20220525
  43. NITROGLYCERIN [Concomitant]
     Active Substance: NITROGLYCERIN
     Indication: Drug therapy
     Dosage: UNK
     Route: 042
     Dates: start: 20220525, end: 20220525
  44. NIFEDIPINE [Concomitant]
     Active Substance: NIFEDIPINE
     Indication: Blood pressure management
     Dosage: UNK
     Route: 048
     Dates: start: 20220609, end: 20220609

REACTIONS (1)
  - Overdose [Unknown]
